FAERS Safety Report 4840403-4 (Version None)
Quarter: 2005Q4

REPORT INFORMATION
  Report Type: 
  Country: None (occurrence: None)
  Receive Date: 20051024
  Receipt Date: 20050823
  Transmission Date: 20060501
  Serious: Yes (Hospitalization)
  Sender: FDA-Public Use
  Company Number: USA-2005-0021083

PATIENT
  Age: 28 Year
  Sex: Female

DRUGS (1)
  1. PALLADONE [Suspect]
     Indication: PAIN
     Dosage: 12 MG, DAILY

REACTIONS (9)
  - AGITATION [None]
  - ANXIETY [None]
  - DEHYDRATION [None]
  - DIARRHOEA [None]
  - NAUSEA [None]
  - PAIN [None]
  - PARANOIA [None]
  - TREMOR [None]
  - VOMITING [None]
